FAERS Safety Report 7115028-0 (Version None)
Quarter: 2010Q4

REPORT INFORMATION
  Report Type: 
  Country: None (occurrence: None)
  Receive Date: 20101122
  Receipt Date: 20091112
  Transmission Date: 20110411
  Serious: No
  Sender: FDA-Public Use
  Company Number: 2009BI037408

PATIENT
  Sex: Female

DRUGS (1)
  1. TYSABRI [Suspect]
     Indication: MULTIPLE SCLEROSIS
     Route: 042
     Dates: start: 20090617, end: 20100809

REACTIONS (8)
  - ALOPECIA [None]
  - CRYING [None]
  - DRY SKIN [None]
  - FATIGUE [None]
  - HEADACHE [None]
  - INFUSION SITE HAEMATOMA [None]
  - MULTIPLE SCLEROSIS [None]
  - URINARY TRACT INFECTION [None]
